FAERS Safety Report 12217174 (Version 2)
Quarter: 2017Q3

REPORT INFORMATION
  Report Type: Spontaneous
  Country: US (occurrence: US)
  Receive Date: 20160329
  Receipt Date: 20170920
  Transmission Date: 20171127
  Serious: Yes (Other)
  Sender: FDA-Public Use
  Company Number: US-SUN PHARMACEUTICAL INDUSTRIES LTD-2016US-113421

PATIENT
  Age: 50 Year
  Sex: Male

DRUGS (1)
  1. PHENYTOIN. [Suspect]
     Active Substance: PHENYTOIN
     Indication: EPILEPSY
     Dosage: 6 DF, DAILY
     Route: 065

REACTIONS (3)
  - Dysphagia [Recovering/Resolving]
  - Oesophageal stenosis [Unknown]
  - Chemical burn [Unknown]
